FAERS Safety Report 9133971 (Version 3)
Quarter: 2013Q2

REPORT INFORMATION
  Report Type: Spontaneous
  Country: US (occurrence: US)
  Receive Date: 20130304
  Receipt Date: 20130401
  Transmission Date: 20140414
  Serious: Yes (Disabling, Other)
  Sender: FDA-Public Use
  Company Number: US-009507513-1203USA00956

PATIENT
  Sex: Female
  Weight: 68.39 kg

DRUGS (5)
  1. ZETIA [Suspect]
     Route: 048
  2. CELEBREX [Suspect]
     Indication: EHLERS-DANLOS SYNDROME
     Dosage: 200 MG, QD
  3. CRESTOR [Suspect]
     Indication: BLOOD CHOLESTEROL INCREASED
  4. VITAMIN D (UNSPECIFIED) [Concomitant]
     Indication: OSTEOPENIA
     Dosage: 50000 IU, QD
  5. NEXIUM [Concomitant]
     Indication: GASTROOESOPHAGEAL REFLUX DISEASE

REACTIONS (14)
  - Intervertebral disc protrusion [Not Recovered/Not Resolved]
  - Abasia [Unknown]
  - Anxiety [Not Recovered/Not Resolved]
  - Pain [Unknown]
  - Migraine [Not Recovered/Not Resolved]
  - Depression [Not Recovered/Not Resolved]
  - Blood cholesterol increased [Unknown]
  - Anxiety [Unknown]
  - Meniscus injury [Unknown]
  - Abdominal discomfort [Unknown]
  - Myalgia [Unknown]
  - Depression [Unknown]
  - Limb operation [Unknown]
  - Local swelling [Unknown]
